FAERS Safety Report 4591310-6 (Version None)
Quarter: 2005Q1

REPORT INFORMATION
  Report Type: 
  Country: None (occurrence: None)
  Receive Date: 20050223
  Receipt Date: 20050223
  Transmission Date: 20050727
  Serious: No
  Sender: FDA-Public Use
  Company Number: None

PATIENT
  Age: 62 Year
  Sex: Male
  Weight: 57.1532 kg

DRUGS (10)
  1. FLUOROURACIL [Suspect]
     Indication: CHEMOTHERAPY
     Dosage: 1000 MG FLAT DOSE QD X 5 DAYS
     Dates: start: 20050217
  2. FLUOROURACIL [Suspect]
     Indication: CHEMOTHERAPY
     Dosage: 1000 MG FLAT DOSE QD X 5 DAYS
     Dates: start: 20050218
  3. ASPIRIN [Concomitant]
  4. DEXAMETHASONE [Concomitant]
  5. ONDANSETRON [Concomitant]
  6. CISPLATIN [Concomitant]
  7. METOCLOPRAMIDE [Concomitant]
  8. OMEPRAZOLE [Concomitant]
  9. FENTANYL CITRATE [Concomitant]
  10. IPRATROPIUM BROMIDE [Concomitant]

REACTIONS (1)
  - SUPRAVENTRICULAR TACHYCARDIA [None]
